FAERS Safety Report 4900182-9 (Version None)
Quarter: 2006Q1

REPORT INFORMATION
  Report Type: 
  Country: None (occurrence: None)
  Receive Date: 20060203
  Receipt Date: 20050614
  Transmission Date: 20060701
  Serious: No
  Sender: FDA-Public Use
  Company Number: US-GLAXOSMITHKLINE-A0562627A

PATIENT
  Age: 63 Year
  Sex: Male

DRUGS (7)
  1. ARIXTRA [Suspect]
     Dosage: 2.5MG PER DAY
     Route: 058
     Dates: start: 20050609
  2. XANAX [Concomitant]
  3. MEPERIDINE HCL [Concomitant]
  4. FUROSEMIDE [Concomitant]
  5. TRICOR [Concomitant]
  6. CRESTOR [Concomitant]
  7. PROMETHAZINE [Concomitant]

REACTIONS (1)
  - INJECTION SITE HAEMORRHAGE [None]
